FAERS Safety Report 6051268-X (Version None)
Quarter: 2009Q1

REPORT INFORMATION
  Report Type: 
  Country: None (occurrence: None)
  Receive Date: 20090126
  Receipt Date: 20090116
  Transmission Date: 20090719
  Serious: Yes (Hospitalization)
  Sender: FDA-Public Use
  Company Number: SE-BIOGENIDEC-2009BI002190

PATIENT
  Age: 37 Year
  Sex: Male
  Weight: 81 kg

DRUGS (4)
  1. AVONEX [Suspect]
     Indication: MULTIPLE SCLEROSIS
     Route: 030
     Dates: start: 20060921, end: 20090108
  2. AVONEX [Suspect]
     Route: 030
     Dates: start: 20090115
  3. SIMVASTATIN - SIMCOMBIN [Concomitant]
     Indication: MULTIPLE SCLEROSIS
     Route: 048
     Dates: start: 20081213, end: 20090108
  4. SIMVASTATIN - SIMCOMBIN [Concomitant]
     Route: 048
     Dates: start: 20090112

REACTIONS (1)
  - INTERVERTEBRAL DISC PROTRUSION [None]
